FAERS Safety Report 23507364 (Version 9)
Quarter: 2025Q1

REPORT INFORMATION
  Report Type: Spontaneous
  Country: FI (occurrence: FI)
  Receive Date: 20240209
  Receipt Date: 20250311
  Transmission Date: 20250409
  Serious: Yes (Life-Threatening, Hospitalization, Other)
  Sender: BAXTER
  Company Number: FI-BAXTER-2024BAX011626

PATIENT
  Age: 70 Year
  Sex: Female
  Weight: 96 kg

DRUGS (77)
  1. IFOSFAMIDE [Suspect]
     Active Substance: IFOSFAMIDE
     Indication: Diffuse large B-cell lymphoma stage II
     Route: 042
     Dates: start: 20231213, end: 20231214
  2. IFOSFAMIDE [Suspect]
     Active Substance: IFOSFAMIDE
     Route: 042
     Dates: start: 20240103, end: 20240104
  3. IFOSFAMIDE [Suspect]
     Active Substance: IFOSFAMIDE
     Route: 042
     Dates: start: 20240124, end: 20240125
  4. CYCLOPHOSPHAMIDE [Suspect]
     Active Substance: CYCLOPHOSPHAMIDE
     Indication: Product used for unknown indication
     Route: 065
     Dates: start: 20230928, end: 20231109
  5. DOXORUBICIN [Suspect]
     Active Substance: DOXORUBICIN
     Route: 065
     Dates: start: 20230928, end: 20231109
  6. EPCORITAMAB [Suspect]
     Active Substance: EPCORITAMAB
     Indication: Diffuse large B-cell lymphoma stage II
     Route: 058
     Dates: start: 20231214, end: 20231214
  7. EPCORITAMAB [Suspect]
     Active Substance: EPCORITAMAB
     Route: 058
     Dates: start: 20231221, end: 20231221
  8. EPCORITAMAB [Suspect]
     Active Substance: EPCORITAMAB
     Route: 058
     Dates: start: 20231228
  9. EPCORITAMAB [Suspect]
     Active Substance: EPCORITAMAB
     Route: 058
     Dates: start: 20240104
  10. EPCORITAMAB [Suspect]
     Active Substance: EPCORITAMAB
     Route: 065
     Dates: start: 20240111
  11. EPCORITAMAB [Suspect]
     Active Substance: EPCORITAMAB
     Route: 058
     Dates: start: 20240118
  12. EPCORITAMAB [Suspect]
     Active Substance: EPCORITAMAB
     Route: 058
     Dates: start: 20240125
  13. CARBOPLATIN [Suspect]
     Active Substance: CARBOPLATIN
     Indication: Diffuse large B-cell lymphoma stage II
     Route: 042
     Dates: start: 20231213, end: 20240103
  14. CARBOPLATIN [Suspect]
     Active Substance: CARBOPLATIN
     Route: 042
     Dates: start: 20240124, end: 20240124
  15. ETOPOSIDE [Suspect]
     Active Substance: ETOPOSIDE
     Indication: Diffuse large B-cell lymphoma stage II
     Route: 042
     Dates: start: 20231212, end: 20231214
  16. ETOPOSIDE [Suspect]
     Active Substance: ETOPOSIDE
     Route: 042
     Dates: start: 20240102, end: 20240104
  17. ETOPOSIDE [Suspect]
     Active Substance: ETOPOSIDE
     Route: 042
     Dates: start: 20240123, end: 20240125
  18. RITUXIMAB [Suspect]
     Active Substance: RITUXIMAB
     Indication: Diffuse large B-cell lymphoma stage II
     Route: 042
     Dates: start: 20231212, end: 20240102
  19. RITUXIMAB [Suspect]
     Active Substance: RITUXIMAB
     Route: 042
     Dates: start: 20240123, end: 20240123
  20. LEVOTHYROXINE [Concomitant]
     Active Substance: LEVOTHYROXINE
     Route: 065
     Dates: start: 20230921
  21. LEVOTHYROXINE [Concomitant]
     Active Substance: LEVOTHYROXINE
     Dates: start: 20201109
  22. PANADOL [Concomitant]
     Active Substance: ACETAMINOPHEN
     Indication: Product used for unknown indication
     Route: 065
     Dates: start: 20230928
  23. PANADOL [Concomitant]
     Active Substance: ACETAMINOPHEN
     Route: 065
     Dates: start: 20240104, end: 20240104
  24. PANADOL [Concomitant]
     Active Substance: ACETAMINOPHEN
     Route: 065
     Dates: start: 20240126
  25. Hicet [Concomitant]
     Indication: Premedication
     Route: 048
     Dates: start: 20240104, end: 20240104
  26. Hicet [Concomitant]
     Route: 048
     Dates: start: 20240111
  27. Hicet [Concomitant]
     Route: 048
     Dates: start: 20240118
  28. Hicet [Concomitant]
     Route: 048
     Dates: start: 20240125
  29. FUROSEMIDE [Concomitant]
     Active Substance: FUROSEMIDE
     Route: 065
     Dates: start: 20231212, end: 20241129
  30. OXAZEPAM [Concomitant]
     Active Substance: OXAZEPAM
     Route: 065
     Dates: start: 20231204
  31. ARANESP [Concomitant]
     Active Substance: DARBEPOETIN ALFA
     Route: 065
     Dates: start: 20231222, end: 20240222
  32. ACETAMINOPHEN [Concomitant]
     Active Substance: ACETAMINOPHEN
     Indication: Premedication
     Route: 048
     Dates: start: 20240104, end: 20240104
  33. ACETAMINOPHEN [Concomitant]
     Active Substance: ACETAMINOPHEN
     Route: 048
     Dates: start: 20240111, end: 20240111
  34. ACETAMINOPHEN [Concomitant]
     Active Substance: ACETAMINOPHEN
     Route: 048
     Dates: start: 20240118, end: 20240118
  35. ACETAMINOPHEN [Concomitant]
     Active Substance: ACETAMINOPHEN
     Route: 048
     Dates: start: 20240125
  36. HYDROCORTISONE [Concomitant]
     Active Substance: HYDROCORTISONE
     Route: 065
     Dates: start: 20231218, end: 20240307
  37. HYDROCORTISONE [Concomitant]
     Active Substance: HYDROCORTISONE
     Route: 065
     Dates: start: 20240104
  38. PANTOPRAZOLE SODIUM [Concomitant]
     Active Substance: PANTOPRAZOLE SODIUM
     Route: 065
     Dates: start: 20230925, end: 20240307
  39. ENOXAPARIN SODIUM [Concomitant]
     Active Substance: ENOXAPARIN SODIUM
     Indication: Product used for unknown indication
     Route: 065
     Dates: start: 20230925, end: 20231218
  40. ENOXAPARIN SODIUM [Concomitant]
     Active Substance: ENOXAPARIN SODIUM
     Route: 065
     Dates: start: 20240320
  41. DIFLUCAN [Concomitant]
     Active Substance: FLUCONAZOLE
     Route: 065
     Dates: start: 20231222, end: 20231229
  42. NYSTATIN [Concomitant]
     Active Substance: NYSTATIN
     Indication: Product used for unknown indication
     Route: 065
     Dates: start: 20231222, end: 20240222
  43. NYSTATIN [Concomitant]
     Active Substance: NYSTATIN
     Route: 065
     Dates: start: 20231222
  44. CEFUROXIME [Concomitant]
     Active Substance: CEFUROXIME
     Route: 065
     Dates: start: 20231228, end: 20231231
  45. IBUPROFEN [Concomitant]
     Active Substance: IBUPROFEN
     Indication: Product used for unknown indication
     Route: 065
     Dates: start: 20230925, end: 20231230
  46. IBUPROFEN [Concomitant]
     Active Substance: IBUPROFEN
     Route: 065
     Dates: start: 20231229, end: 20231230
  47. FUROSEMIDE [Concomitant]
     Active Substance: FUROSEMIDE
     Route: 065
     Dates: start: 20230925
  48. ONDANSETRON [Concomitant]
     Active Substance: ONDANSETRON
     Route: 065
     Dates: start: 20230925, end: 20241129
  49. POLYETHYLENE GLYCOL 4000 [Concomitant]
     Active Substance: POLYETHYLENE GLYCOL 4000
     Indication: Product used for unknown indication
     Route: 065
     Dates: start: 20230929
  50. Beclomet [Concomitant]
     Route: 065
     Dates: start: 20201209
  51. PRIMPERAN [Concomitant]
     Active Substance: METOCLOPRAMIDE HYDROCHLORIDE
     Route: 065
     Dates: start: 20230925, end: 20241129
  52. CEPHALEXIN [Concomitant]
     Active Substance: CEPHALEXIN
     Route: 065
     Dates: start: 20231231, end: 20240104
  53. SODIUM CHLORIDE [Concomitant]
     Active Substance: SODIUM CHLORIDE
     Route: 065
     Dates: start: 20231212, end: 20240104
  54. SODIUM CHLORIDE [Concomitant]
     Active Substance: SODIUM CHLORIDE
     Route: 065
     Dates: start: 20240102, end: 20240104
  55. ELECTROLYTES NOS [Concomitant]
     Active Substance: ELECTROLYTES NOS
     Route: 065
     Dates: start: 20231228, end: 20231229
  56. DEXAMETHASONE [Concomitant]
     Active Substance: DEXAMETHASONE
     Route: 065
     Dates: start: 20231212, end: 20240103
  57. DEXAMETHASONE [Concomitant]
     Active Substance: DEXAMETHASONE
     Route: 065
     Dates: start: 20240102, end: 20240124
  58. POTASSIUM CHLORIDE [Concomitant]
     Active Substance: POTASSIUM CHLORIDE
     Indication: Product used for unknown indication
     Route: 065
     Dates: start: 20231006, end: 20240215
  59. POTASSIUM CHLORIDE [Concomitant]
     Active Substance: POTASSIUM CHLORIDE
     Route: 065
     Dates: start: 20230928
  60. POTASSIUM CHLORIDE [Concomitant]
     Active Substance: POTASSIUM CHLORIDE
     Route: 065
     Dates: start: 20230828, end: 20240215
  61. Aclovir [Concomitant]
     Indication: Product used for unknown indication
     Route: 065
     Dates: start: 20240111, end: 20240117
  62. VALACYCLOVIR HYDROCHLORIDE [Concomitant]
     Active Substance: VALACYCLOVIR HYDROCHLORIDE
     Indication: Product used for unknown indication
     Route: 065
     Dates: start: 20240118, end: 20240222
  63. ALOXI [Concomitant]
     Active Substance: PALONOSETRON HYDROCHLORIDE
     Route: 065
     Dates: start: 20240125, end: 20240125
  64. PREDNISOLONE [Concomitant]
     Active Substance: PREDNISOLONE
     Indication: Prophylaxis
     Route: 048
     Dates: start: 20231214, end: 20231217
  65. PREDNISOLONE [Concomitant]
     Active Substance: PREDNISOLONE
     Route: 048
     Dates: start: 20231221, end: 20231224
  66. PREDNISOLONE [Concomitant]
     Active Substance: PREDNISOLONE
     Route: 048
     Dates: start: 20231228, end: 20231231
  67. PREDNISOLONE [Concomitant]
     Active Substance: PREDNISOLONE
     Route: 048
     Dates: start: 20240104, end: 20240107
  68. LEVOTHYROXINE [Concomitant]
     Active Substance: LEVOTHYROXINE
     Indication: Product used for unknown indication
     Route: 065
     Dates: start: 20230921
  69. LEVOTHYROXINE [Concomitant]
     Active Substance: LEVOTHYROXINE
     Route: 065
     Dates: start: 20201109
  70. LEVOTHYROXINE [Concomitant]
     Active Substance: LEVOTHYROXINE
     Route: 065
     Dates: start: 20201109
  71. CETIRIZINE HCL [Concomitant]
     Active Substance: CETIRIZINE HYDROCHLORIDE
     Indication: Product used for unknown indication
     Route: 065
     Dates: start: 20240104, end: 20240104
  72. DEXAMETHASONE [Concomitant]
     Active Substance: DEXAMETHASONE
     Indication: Prophylaxis
     Route: 065
     Dates: start: 20231212, end: 20240103
  73. DEXAMETHASONE [Concomitant]
     Active Substance: DEXAMETHASONE
     Route: 048
     Dates: start: 20240102, end: 20240102
  74. DEXAMETHASONE [Concomitant]
     Active Substance: DEXAMETHASONE
     Route: 048
     Dates: start: 20240103, end: 20240103
  75. NYSTATIN [Concomitant]
     Active Substance: NYSTATIN
     Route: 065
     Dates: start: 20231222
  76. PEGFILGRASTIM [Concomitant]
     Active Substance: PEGFILGRASTIM
     Route: 065
     Dates: start: 20230929
  77. MEROPENEM [Concomitant]
     Active Substance: MEROPENEM

REACTIONS (9)
  - Cytokine release syndrome [Recovered/Resolved]
  - Neutropenic infection [Recovered/Resolved]
  - Fatigue [Unknown]
  - Pyrexia [Recovered/Resolved]
  - Feeling cold [Unknown]
  - Blister infected [Unknown]
  - Oral herpes [Unknown]
  - Neutropenia [Unknown]
  - Nasal herpes [Unknown]

NARRATIVE: CASE EVENT DATE: 20240111
